FAERS Safety Report 18710904 (Version 1)
Quarter: 2021Q1

REPORT INFORMATION
  Report Type: Report from Study
  Country: IN (occurrence: IN)
  Receive Date: 20210107
  Receipt Date: 20210107
  Transmission Date: 20210419
  Serious: Yes (Other)
  Sender: FDA-Public Use
  Company Number: PHHY2018IN003074

PATIENT
  Age: 53 Year
  Sex: Female

DRUGS (2)
  1. TASIGNA [Suspect]
     Active Substance: NILOTINIB
     Indication: CHRONIC MYELOID LEUKAEMIA
     Dosage: 400 MG, BID
     Route: 048
     Dates: start: 20150218, end: 20180428
  2. TASIGNA [Suspect]
     Active Substance: NILOTINIB
     Dosage: 300 MG, BID
     Route: 065
     Dates: start: 20150218, end: 20201218

REACTIONS (2)
  - White blood cell count decreased [Recovering/Resolving]
  - Hepatic infection [Unknown]

NARRATIVE: CASE EVENT DATE: 20180428
